FAERS Safety Report 21330422 (Version 2)
Quarter: 2022Q4

REPORT INFORMATION
  Report Type: Spontaneous
  Country: IT (occurrence: IT)
  Receive Date: 20220913
  Receipt Date: 20221031
  Transmission Date: 20230113
  Serious: Yes (Hospitalization)
  Sender: FDA-Public Use
  Company Number: None

PATIENT
  Age: 63 Year
  Sex: Male

DRUGS (3)
  1. GABAPENTIN [Suspect]
     Active Substance: GABAPENTIN
     Indication: Product used for unknown indication
     Dosage: 15 DOSAGE FORM
     Route: 048
     Dates: start: 20220515, end: 20220515
  2. VALPROATE SODIUM [Suspect]
     Active Substance: VALPROATE SODIUM
     Indication: Product used for unknown indication
     Dosage: 18 DOSAGE FORM
     Route: 048
     Dates: start: 20220515, end: 20220515
  3. EN [Suspect]
     Active Substance: DELORAZEPAM
     Indication: Product used for unknown indication
     Dosage: 18 DOSAGE FORM (18 CP/TOT 0.5 MG)
     Route: 065
     Dates: start: 20220515, end: 20220515

REACTIONS (5)
  - Sopor [Unknown]
  - Disorganised speech [Unknown]
  - Intentional self-injury [Unknown]
  - Intentional overdose [Unknown]
  - Drug abuse [Unknown]

NARRATIVE: CASE EVENT DATE: 20220515
